FAERS Safety Report 11810584 (Version 1)
Quarter: 2015Q4

REPORT INFORMATION
  Report Type: Spontaneous
  Country: FR (occurrence: FR)
  Receive Date: 20151208
  Receipt Date: 20151208
  Transmission Date: 20160305
  Serious: Yes (Hospitalization, Other)
  Sender: FDA-Public Use
  Company Number: FR-FERRINGPH-2015FE04513

PATIENT

DRUGS (1)
  1. PICOPREP [Suspect]
     Active Substance: CITRIC ACID MONOHYDRATE\MAGNESIUM OXIDE\SODIUM PICOSULFATE
     Indication: BOWEL PREPARATION
     Dosage: 1 SACHET 2 P.M. AND 1 SACHET 7 P.M.
     Route: 048
     Dates: start: 20151102, end: 20151102

REACTIONS (10)
  - Fall [Unknown]
  - Hyponatraemia [Recovering/Resolving]
  - Off label use [Recovered/Resolved]
  - Rib fracture [Recovering/Resolving]
  - Amnesia [Unknown]
  - Vomiting [Unknown]
  - Diarrhoea [Unknown]
  - Chest pain [Unknown]
  - Malaise [Unknown]
  - Nausea [Unknown]

NARRATIVE: CASE EVENT DATE: 20151102
